FAERS Safety Report 5526228-5 (Version None)
Quarter: 2007Q4

REPORT INFORMATION
  Report Type: 
  Country: None (occurrence: None)
  Receive Date: 20071127
  Receipt Date: 20071123
  Transmission Date: 20080405
  Serious: Yes (Death, Hospitalization, Other)
  Sender: FDA-Public Use
  Company Number: PHBS2007TH19813

PATIENT
  Age: 61 Year
  Sex: Male

DRUGS (1)
  1. PAMIDRONATE DISODIUM [Suspect]
     Indication: MULTIPLE MYELOMA
     Dosage: 90MG, MONTHLY
     Route: 042
     Dates: start: 20041201, end: 20060301

REACTIONS (7)
  - BONE DISORDER [None]
  - ORAL PAIN [None]
  - OSTEOLYSIS [None]
  - OSTEONECROSIS [None]
  - PURULENCE [None]
  - SUBARACHNOID HAEMORRHAGE [None]
  - WOUND DEBRIDEMENT [None]
